FAERS Safety Report 13181994 (Version 4)
Quarter: 2018Q1

REPORT INFORMATION
  Report Type: Spontaneous
  Country: US (occurrence: US)
  Receive Date: 20170202
  Receipt Date: 20180123
  Transmission Date: 20180508
  Serious: No
  Sender: FDA-Public Use
  Company Number: US-IMPAX LABORATORIES, INC-2016-IPXL-02476

PATIENT
  Age: 82 Year
  Sex: Female
  Weight: 66 kg

DRUGS (2)
  1. RYTARY [Suspect]
     Active Substance: CARBIDOPA\LEVODOPA
     Indication: PARKINSON^S DISEASE
     Dosage: 36.25/145MG , 1 CAPSULE FOUR TIMES DAILY
     Route: 048
     Dates: start: 201701
  2. RYTARY [Suspect]
     Active Substance: CARBIDOPA\LEVODOPA
     Dosage: 48.75/195 MG 1 CAPSULE FOUR TIMES DAILY
     Route: 048
     Dates: start: 201701

REACTIONS (4)
  - Fatigue [Unknown]
  - Dyskinesia [Recovered/Resolved]
  - Therapeutic response shortened [Unknown]
  - Insomnia [Recovered/Resolved]

NARRATIVE: CASE EVENT DATE: 201611
